FAERS Safety Report 25704766 (Version 2)
Quarter: 2025Q3

REPORT INFORMATION
  Report Type: Spontaneous
  Country: SG (occurrence: SG)
  Receive Date: 20250820
  Receipt Date: 20250826
  Transmission Date: 20251020
  Serious: Yes (Disabling)
  Sender: GILEAD
  Company Number: SG-GILEAD-2025-0724930

PATIENT
  Sex: Male
  Weight: 90.2 kg

DRUGS (1)
  1. EPCLUSA [Suspect]
     Active Substance: SOFOSBUVIR\VELPATASVIR
     Indication: Chronic hepatitis C
     Route: 048
     Dates: start: 20250121, end: 20250421

REACTIONS (1)
  - Drug ineffective [Not Recovered/Not Resolved]
